FAERS Safety Report 8320600-6 (Version None)
Quarter: 2012Q2

REPORT INFORMATION
  Report Type: 
  Country: None (occurrence: None)
  Receive Date: 20120430
  Receipt Date: 20120423
  Transmission Date: 20120825
  Serious: Yes (Hospitalization)
  Sender: FDA-Public Use
  Company Number: GB-SANOFI-AVENTIS-2012SA028476

PATIENT
  Age: 58 Year
  Sex: Male

DRUGS (1)
  1. INSULIN GLARGINE [Suspect]
     Indication: TYPE 1 DIABETES MELLITUS
     Dosage: DOSE-3FORM-CARTRIDGE
     Route: 065
     Dates: end: 20120329

REACTIONS (2)
  - DIABETIC KETOACIDOSIS [None]
  - DRUG LABEL CONFUSION [None]
